FAERS Safety Report 6388032-8 (Version None)
Quarter: 2009Q3

REPORT INFORMATION
  Report Type: 
  Country: None (occurrence: None)
  Receive Date: 20090930
  Receipt Date: 20090916
  Transmission Date: 20100115
  Serious: Yes (Hospitalization)
  Sender: FDA-Public Use
  Company Number: 8051741

PATIENT
  Age: 62 Year
  Sex: Female

DRUGS (9)
  1. KEPPRA [Suspect]
     Indication: PARTIAL SEIZURES
     Dosage: 500 MG 2/D PO
     Route: 048
     Dates: start: 20080811, end: 20080904
  2. ZYPREXA [Suspect]
     Indication: MANIA
     Dosage: 5 MG 1/D PO
     Route: 048
     Dates: start: 20080815
  3. ORFIRIL /00228501/ [Suspect]
     Indication: PARTIAL SEIZURES
     Dosage: 1200 MG 2/D PO
     Route: 048
     Dates: start: 20080817, end: 20090910
  4. AERIUS /01398501/ [Concomitant]
  5. COZAAR [Concomitant]
  6. LIPITOR [Concomitant]
  7. LAMICTAL [Concomitant]
  8. ALBYL-E [Concomitant]
  9. EPINAT /00017401/ [Concomitant]

REACTIONS (2)
  - MANIA [None]
  - RESPIRATORY TRACT INFECTION [None]
